FAERS Safety Report 4448854-7 (Version None)
Quarter: 2004Q3

REPORT INFORMATION
  Report Type: 
  Country: None (occurrence: None)
  Receive Date: 20040909
  Receipt Date: 20040827
  Transmission Date: 20050211
  Serious: Yes (Death)
  Sender: FDA-Public Use
  Company Number: HQWYE994605AUG04

PATIENT
  Age: 69 Year
  Sex: Male

DRUGS (9)
  1. AMIODARONE HCL [Suspect]
     Indication: VENTRICULAR TACHYCARDIA
     Dosage: 400 MG 1X PER 1 DAY; ORAL
     Route: 048
     Dates: start: 20040727, end: 20040728
  2. SHINBIT (NIFEKALANT HYDROCHLORIDE) [Concomitant]
  3. DILTIAZEM HYDROCHLORIDE [Concomitant]
  4. NOVOLIN R [Concomitant]
  5. PIPERACILLIN SODIUM [Concomitant]
  6. VANCOMYCIN [Concomitant]
  7. ZANTAC [Concomitant]
  8. ISOSORBIDE DINITRATE [Concomitant]
  9. HANP (CARPERITIDE) [Concomitant]

REACTIONS (7)
  - ADRENAL INSUFFICIENCY [None]
  - FAT EMBOLISM [None]
  - GASTROINTESTINAL NECROSIS [None]
  - HYPOGLYCAEMIA [None]
  - METABOLIC ACIDOSIS [None]
  - PERIPHERAL CIRCULATORY FAILURE [None]
  - SHOCK [None]
